FAERS Safety Report 9729784 (Version 1)
Quarter: 2013Q4

REPORT INFORMATION
  Report Type: Spontaneous
  Country: US (occurrence: US)
  Receive Date: 20131204
  Receipt Date: 20131204
  Transmission Date: 20140711
  Serious: No
  Sender: FDA-Public Use
  Company Number: US-GILEAD-2009-0022481

PATIENT
  Sex: Male
  Weight: 108.86 kg

DRUGS (7)
  1. LETAIRIS [Suspect]
     Indication: PULMONARY ARTERIAL HYPERTENSION
     Route: 048
     Dates: start: 20090523
  2. NORVASC [Concomitant]
  3. BUMETANIDE [Concomitant]
  4. DIGITEK [Concomitant]
  5. WARFARIN [Concomitant]
  6. GLYBURIDE [Concomitant]
  7. POTASSIUM [Concomitant]

REACTIONS (4)
  - Chest pain [Unknown]
  - Unevaluable event [Unknown]
  - Abdominal pain upper [Unknown]
  - Local swelling [Unknown]
